FAERS Safety Report 15435171 (Version 1)
Quarter: 2018Q3

REPORT INFORMATION
  Report Type: Spontaneous
  Country: US (occurrence: US)
  Receive Date: 20180924
  Receipt Date: 20180924
  Transmission Date: 20181010
  Serious: Yes (Hospitalization)
  Sender: FDA-Public Use
  Company Number: None

PATIENT
  Sex: Male

DRUGS (5)
  1. VIGABATRIN. [Suspect]
     Active Substance: VIGABATRIN
     Indication: SEIZURE
     Dosage: ?          OTHER ROUTE:VIA G?TUBE?
     Dates: start: 20180607
  2. KEPPRA, BACLOFEN [Concomitant]
  3. VIGABATRIN. [Suspect]
     Active Substance: VIGABATRIN
     Indication: EPILEPSY
     Dosage: ?          OTHER ROUTE:VIA G?TUBE?
     Dates: start: 20180607
  4. OXCARBAZEPIN, RANITIDINE [Concomitant]
  5. DIAZEPAM, PRILOSEC [Concomitant]

REACTIONS (1)
  - Hospitalisation [None]
